FAERS Safety Report 21711920 (Version 2)
Quarter: 2025Q2

REPORT INFORMATION
  Report Type: Spontaneous
  Country: CA (occurrence: CA)
  Receive Date: 20221212
  Receipt Date: 20250606
  Transmission Date: 20250716
  Serious: Yes (Life-Threatening)
  Sender: AUROBINDO
  Company Number: CA-AUROBINDO-AUR-APL-2022-051457

PATIENT
  Age: 84 Year
  Sex: Male
  Weight: 83 kg

DRUGS (12)
  1. CIPROFLOXACIN [Suspect]
     Active Substance: CIPROFLOXACIN
     Indication: Diabetic foot infection
     Dosage: 500 MILLIGRAM, TWO TIMES A DAY
     Route: 048
  2. ERTAPENEM [Suspect]
     Active Substance: ERTAPENEM
     Indication: Diabetic foot infection
     Dosage: 1 GRAM, ONCE A DAY
     Route: 030
  3. MEROPENEM [Suspect]
     Active Substance: MEROPENEM
     Indication: Diabetic foot infection
     Dosage: 1 GRAM, 3 TIMES A DAY
     Route: 042
  4. METRONIDAZOLE [Suspect]
     Active Substance: METRONIDAZOLE
     Indication: Diabetic foot infection
     Dosage: 500 MILLIGRAM, TWO TIMES A DAY
     Route: 048
  5. CEFTAZIDIME [Suspect]
     Active Substance: CEFTAZIDIME
     Indication: Diabetic foot infection
     Route: 065
  6. GENTAMICIN [Suspect]
     Active Substance: GENTAMICIN
     Indication: Diabetic foot infection
     Dosage: 160 MILLIGRAM, ONCE A DAY
     Route: 042
  7. PIPERACILLIN SODIUM\TAZOBACTAM SODIUM [Suspect]
     Active Substance: PIPERACILLIN SODIUM\TAZOBACTAM SODIUM
     Indication: Diabetic foot infection
     Route: 065
  8. CEFTRIAXONE [Suspect]
     Active Substance: CEFTRIAXONE
     Indication: Diabetic foot infection
     Route: 042
  9. CEFTOLOZANE SULFATE\TAZOBACTAM SODIUM [Suspect]
     Active Substance: CEFTOLOZANE SULFATE\TAZOBACTAM SODIUM
     Indication: Diabetic foot infection
     Dosage: 1.5 GRAM, 3 TIMES A DAY
     Route: 065
  10. FOSFOMYCIN [Suspect]
     Active Substance: FOSFOMYCIN
     Indication: Diabetic foot infection
     Dosage: 6 GRAM, 3 TIMES A DAY
     Route: 042
  11. CLOXACILLIN [Concomitant]
     Active Substance: CLOXACILLIN
     Indication: Diabetic foot infection
     Route: 048
  12. RAMIPRIL [Concomitant]
     Active Substance: RAMIPRIL
     Indication: Product used for unknown indication
     Route: 065

REACTIONS (1)
  - Drug ineffective [Unknown]
